FAERS Safety Report 7398271-5 (Version None)
Quarter: 2011Q2

REPORT INFORMATION
  Report Type: 
  Country: None (occurrence: None)
  Receive Date: 20110406
  Receipt Date: 20110330
  Transmission Date: 20111010
  Serious: Yes (Other)
  Sender: FDA-Public Use
  Company Number: ES-GILEAD-2011-0038175

PATIENT
  Age: 83 Year
  Sex: Male

DRUGS (6)
  1. RANEXA [Suspect]
     Indication: ISCHAEMIC CARDIOMYOPATHY
     Route: 048
     Dates: start: 20110224, end: 20110225
  2. EMCONCOR [Concomitant]
     Route: 048
     Dates: start: 20100101
  3. FUROSEMIDE [Concomitant]
     Route: 048
     Dates: start: 20090101
  4. CORDIPLAST [Concomitant]
     Route: 062
     Dates: start: 20100101
  5. SINTROM [Concomitant]
     Dates: start: 20050101
  6. ENALAPRIL MALEATE [Concomitant]
     Route: 048
     Dates: start: 20100101

REACTIONS (1)
  - CHEST PAIN [None]
